FAERS Safety Report 9367127 (Version 1)
Quarter: 2013Q2

REPORT INFORMATION
  Report Type: Other
  Country: JP (occurrence: JP)
  Receive Date: 20130625
  Receipt Date: 20130625
  Transmission Date: 20140414
  Serious: Yes (Other)
  Sender: FDA-Public Use
  Company Number: JP-BRISTOL-MYERS SQUIBB COMPANY-19033810

PATIENT
  Age: 6 Decade
  Sex: Female

DRUGS (3)
  1. PARAPLATIN [Suspect]
     Indication: LUNG ADENOCARCINOMA
  2. PEMETREXED DISODIUM [Suspect]
     Indication: LUNG ADENOCARCINOMA
  3. ERLOTINIB [Suspect]
     Indication: LUNG ADENOCARCINOMA

REACTIONS (1)
  - Interstitial lung disease [Unknown]
